FAERS Safety Report 9458265 (Version 1)
Quarter: 2013Q3

REPORT INFORMATION
  Report Type: Spontaneous
  Country: AU (occurrence: AU)
  Receive Date: 20130814
  Receipt Date: 20130814
  Transmission Date: 20140515
  Serious: Yes (Other)
  Sender: FDA-Public Use
  Company Number: AU-PFIZER INC-2013233471

PATIENT
  Age: 73 Year
  Sex: Male

DRUGS (2)
  1. CIPROFLOXACIN HCL [Suspect]
     Dosage: 1 G, DAILY
     Route: 048
     Dates: start: 20101007, end: 20101018
  2. VANCOMYCIN HCL [Suspect]
     Dosage: 3 MG, DAILY
     Route: 042
     Dates: start: 20101003, end: 20101018

REACTIONS (1)
  - Renal impairment [Recovered/Resolved]
